FAERS Safety Report 8762813 (Version 1)
Quarter: 2012Q4

REPORT INFORMATION
  Report Type: 
  Country: US (occurrence: US)
  Receive Date: 20120830
  Receipt Date: 20120830
  Transmission Date: 20130627
  Serious: No
  Sender: FDA-Public Use
  Company Number: US-ASTRAZENECA-2012SE46795

PATIENT
  Age: 60 Year
  Sex: Female

DRUGS (5)
  1. NEXIUM [Suspect]
     Route: 048
  2. PRILOSEC [Suspect]
     Route: 048
  3. SEROQUEL XR [Suspect]
     Route: 048
  4. LITHIUM [Concomitant]
  5. TOPAMAX [Concomitant]

REACTIONS (8)
  - Drug dose omission [Unknown]
  - Dyspepsia [Unknown]
  - Drug ineffective [Unknown]
  - Malaise [Unknown]
  - Drug name confusion [Unknown]
  - Adverse event [Unknown]
  - Disturbance in attention [Unknown]
  - Cognitive disorder [Unknown]
